FAERS Safety Report 7949576-8 (Version None)
Quarter: 2011Q4

REPORT INFORMATION
  Report Type: 
  Country: None (occurrence: None)
  Receive Date: 20111130
  Receipt Date: 20111115
  Transmission Date: 20120403
  Serious: Yes (Hospitalization)
  Sender: FDA-Public Use
  Company Number: US-BAYER-2010-006219

PATIENT
  Age: 30 Year
  Sex: Female
  Weight: 52 kg

DRUGS (10)
  1. YASMIN [Suspect]
     Indication: CONTRACEPTION
     Dosage: UNK
     Route: 048
     Dates: start: 20030101, end: 20080101
  2. IBUPROFEN (ADVIL) [Concomitant]
     Indication: PAIN
  3. PROTONIX [Concomitant]
  4. COUGH AND COLD PREPARATIONS [Concomitant]
     Indication: NASOPHARYNGITIS
  5. YAZ [Suspect]
     Indication: CONTRACEPTION
     Dosage: UNK
     Route: 048
     Dates: start: 20030101, end: 20080101
  6. PROZAC [Concomitant]
     Indication: ANXIETY
     Dosage: UNK
     Dates: start: 20050101
  7. CALCIUM CARBONATE [Concomitant]
     Indication: UNEVALUABLE EVENT
  8. KLONOPIN [Concomitant]
  9. CLONAZEPAM [Concomitant]
     Dosage: 1 MG, UNK
     Dates: start: 20070709, end: 20081223
  10. PHENTERMINE [Concomitant]
     Dosage: 37.5 MG, UNK
     Dates: start: 20070719, end: 20081128

REACTIONS (4)
  - CHOLECYSTITIS CHRONIC [None]
  - CHOLELITHIASIS [None]
  - ABDOMINAL PAIN [None]
  - PAIN [None]
